FAERS Safety Report 23601718 (Version 3)
Quarter: 2024Q4

REPORT INFORMATION
  Report Type: Report from Study
  Country: US (occurrence: US)
  Receive Date: 20240306
  Receipt Date: 20241121
  Transmission Date: 20250115
  Serious: Yes (Disabling, Other)
  Sender: TAKEDA
  Company Number: US-SHIRE-US202019102

PATIENT
  Age: 63 Year
  Sex: Female

DRUGS (3)
  1. HUMAN IMMUNOGLOBULIN G [Suspect]
     Active Substance: HUMAN IMMUNOGLOBULIN G
     Indication: Primary immunodeficiency syndrome
     Dosage: UNK
  2. HUMAN IMMUNOGLOBULIN G [Suspect]
     Active Substance: HUMAN IMMUNOGLOBULIN G
     Indication: Selective IgG subclass deficiency
     Dosage: 20 GRAM
  3. HUMAN IMMUNOGLOBULIN G [Suspect]
     Active Substance: HUMAN IMMUNOGLOBULIN G
     Dosage: 30 GRAM

REACTIONS (7)
  - Pelvic fracture [Unknown]
  - Disability [Unknown]
  - Pneumonia [Recovered/Resolved]
  - Road traffic accident [Unknown]
  - Illness [Unknown]
  - Insurance issue [Unknown]
  - Product use issue [Unknown]

NARRATIVE: CASE EVENT DATE: 20240305
